FAERS Safety Report 13001975 (Version 1)
Quarter: 2016Q4

REPORT INFORMATION
  Report Type: Spontaneous
  Country: JP (occurrence: JP)
  Receive Date: 20161206
  Receipt Date: 20161206
  Transmission Date: 20170207
  Serious: Yes (Other)
  Sender: FDA-Public Use
  Company Number: JP-PFIZER INC-2016561080

PATIENT

DRUGS (1)
  1. SUTENT [Suspect]
     Active Substance: SUNITINIB MALATE
     Dosage: 37.5 MG, CYCLIC (DAILY ON A REGIMEN OF A 2-WEEK-ON, 1-WEEK-OFF SCHEDULE)
     Route: 048

REACTIONS (2)
  - Neoplasm progression [Unknown]
  - Interstitial lung disease [Unknown]
